FAERS Safety Report 6653634-8 (Version None)
Quarter: 2010Q1

REPORT INFORMATION
  Report Type: 
  Country: None (occurrence: None)
  Receive Date: 20100326
  Receipt Date: 20100317
  Transmission Date: 20100710
  Serious: Yes (Hospitalization)
  Sender: FDA-Public Use
  Company Number: JP-NOVOPROD-305853

PATIENT
  Age: 75 Year
  Sex: Female
  Weight: 61 kg

DRUGS (6)
  1. NOVORAPID CHU FLEXPEN [Suspect]
     Dosage: 24 IU, QD
     Route: 058
     Dates: start: 20080401
  2. NOVORAPID 30 MIX CHU FLEXPEN [Suspect]
     Dosage: 1 IU/KG, QD
     Route: 058
     Dates: start: 20050801, end: 20080301
  3. NOVOLIN R [Suspect]
     Indication: TYPE 2 DIABETES MELLITUS
     Dosage: 0.64 IU/KG, QD
     Route: 058
     Dates: start: 20030701, end: 20050801
  4. NOVOLIN 20R CHU FLEXPEN [Suspect]
     Indication: TYPE 2 DIABETES MELLITUS
     Dosage: 0.49 IU/KG, QD
     Route: 058
     Dates: start: 19980901, end: 20030601
  5. NOVOLET 20R CHU [Suspect]
     Indication: DRUG USE FOR UNKNOWN INDICATION
  6. INSULIN GLARGINE [Concomitant]
     Indication: TYPE 2 DIABETES MELLITUS
     Dosage: 10 IU, QD
     Route: 058
     Dates: start: 20080401

REACTIONS (4)
  - ANTI-GAD ANTIBODY POSITIVE [None]
  - BLOOD GLUCOSE FLUCTUATION [None]
  - BLOOD GLUCOSE INCREASED [None]
  - DIABETES MELLITUS INADEQUATE CONTROL [None]
